FAERS Safety Report 9432820 (Version 1)
Quarter: 2013Q3

REPORT INFORMATION
  Report Type: Spontaneous
  Country: IT (occurrence: IT)
  Receive Date: 20130731
  Receipt Date: 20130731
  Transmission Date: 20140515
  Serious: Yes (Hospitalization)
  Sender: FDA-Public Use
  Company Number: IT-BAYER-2013-089756

PATIENT
  Age: 93 Year
  Sex: Female

DRUGS (9)
  1. CARDIOASPIRIN [Suspect]
     Indication: MYOCARDIAL ISCHAEMIA
     Dosage: DAILY DOSE 100 MG
     Route: 048
     Dates: start: 20130101, end: 20130703
  2. PLAVIX [Suspect]
     Indication: MYOCARDIAL ISCHAEMIA
     Dosage: DAILY DOSE 75 MG
     Route: 048
     Dates: start: 20130101, end: 20130703
  3. PLAVIX [Suspect]
     Indication: MYOCARDIAL ISCHAEMIA
     Dosage: UNK
  4. SEROQUEL [Concomitant]
     Dosage: UNK
  5. CLARITHROMYCIN [Concomitant]
     Dosage: UNK
  6. CANRENONE [Concomitant]
     Dosage: 25 MG, DAILY
  7. FUROSEMIDE [Concomitant]
     Dosage: 25 MG, UNK
  8. TRAZODONE [Concomitant]
     Dosage: 30 GTT, UNK
  9. PROMAZINE [Concomitant]
     Dosage: 20 GTT, DAILY

REACTIONS (1)
  - Iron deficiency anaemia [Recovered/Resolved]
